FAERS Safety Report 10113849 (Version 2)
Quarter: 2015Q1

REPORT INFORMATION
  Report Type: Other
  Country: US (occurrence: US)
  Receive Date: 20140425
  Receipt Date: 20150216
  Transmission Date: 20150720
  Serious: Yes (Hospitalization, Other)
  Sender: FDA-Public Use
  Company Number: US-GSKPPD-2014GSK012261

PATIENT
  Age: 54 Year
  Sex: Male

DRUGS (8)
  1. VALTURNA [Concomitant]
     Active Substance: ALISKIREN HEMIFUMARATE\VALSARTAN
  2. ENOXAPARIN [Concomitant]
     Active Substance: ENOXAPARIN
     Route: 058
  3. AVANDAMET [Suspect]
     Active Substance: METFORMIN HYDROCHLORIDE\ROSIGLITAZONE MALEATE
     Indication: DIABETES MELLITUS
     Dosage: DATES OF AVANDAMET USE COULD NOT BE CONFIRMED IN RECORDS REVIEWED.
  4. CARVEDILOL. [Concomitant]
     Active Substance: CARVEDILOL
  5. PRASUGREL [Concomitant]
     Active Substance: PRASUGREL
  6. AVANDIA [Suspect]
     Active Substance: ROSIGLITAZONE MALEATE
     Indication: DIABETES MELLITUS
     Dosage: AVANDIA WAS NOT LISTED AMONG THE PATIENTS RECORDS REVIEWED.
     Route: 048
  7. WARFARIN [Concomitant]
     Active Substance: WARFARIN
  8. ASPIRIN. [Concomitant]
     Active Substance: ASPIRIN
     Route: 058

REACTIONS (1)
  - Myocardial infarction [Recovered/Resolved]

NARRATIVE: CASE EVENT DATE: 20110123
